FAERS Safety Report 26066825 (Version 1)
Quarter: 2025Q4

REPORT INFORMATION
  Report Type: Spontaneous
  Country: US (occurrence: US)
  Receive Date: 20251119
  Receipt Date: 20251119
  Transmission Date: 20260118
  Serious: Yes (Hospitalization)
  Sender: PURDUE
  Company Number: US-PURDUE-USA-2025-0322200

PATIENT
  Age: 54 Year

DRUGS (2)
  1. NALMEFENE HYDROCHLORIDE [Suspect]
     Active Substance: NALMEFENE HYDROCHLORIDE
     Indication: Product used for unknown indication
     Dosage: 2 MILLIGRAM
     Route: 042
     Dates: start: 20250729
  2. NALOXONE [Suspect]
     Active Substance: NALOXONE
     Indication: Product used for unknown indication
     Dosage: 0.4 MILLIGRAM
     Route: 042
     Dates: start: 20250729

REACTIONS (1)
  - Mental status changes [Unknown]
